FAERS Safety Report 20896514 (Version 1)
Quarter: 2022Q2

REPORT INFORMATION
  Report Type: Spontaneous
  Country: US (occurrence: US)
  Receive Date: 20220531
  Receipt Date: 20220531
  Transmission Date: 20220721
  Serious: Yes (Other)
  Sender: FDA-Public Use
  Company Number: US-BRISTOL-MYERS SQUIBB COMPANY-2022-044001

PATIENT
  Age: 74 Year
  Sex: Male

DRUGS (1)
  1. LENALIDOMIDE [Suspect]
     Active Substance: LENALIDOMIDE
     Indication: Product used for unknown indication
     Dosage: QUANTITY: 21
     Route: 048
     Dates: start: 2014

REACTIONS (5)
  - Back disorder [Unknown]
  - Prostate cancer [Unknown]
  - Pneumonia [Unknown]
  - Pyrexia [Unknown]
  - Aortic valve stenosis [Unknown]
